FAERS Safety Report 11926704 (Version 2)
Quarter: 2016Q1

REPORT INFORMATION
  Report Type: Spontaneous
  Country: IL (occurrence: IL)
  Receive Date: 20160119
  Receipt Date: 20160203
  Transmission Date: 20160526
  Serious: Yes (Hospitalization)
  Sender: FDA-Public Use
  Company Number: IL-SA-2016SA006194

PATIENT
  Age: 19 Day
  Sex: Male

DRUGS (3)
  1. METHOTREXATE [Concomitant]
     Active Substance: METHOTREXATE
     Indication: IMMUNOMODULATORY THERAPY
     Dates: start: 20160107
  2. RITUXIMAB [Concomitant]
     Active Substance: RITUXIMAB
     Indication: IMMUNOMODULATORY THERAPY
     Dates: start: 20160106
  3. MYOZYME [Suspect]
     Active Substance: ALGLUCOSIDASE ALFA
     Indication: GLYCOGEN STORAGE DISEASE TYPE II
     Route: 041
     Dates: start: 20160107

REACTIONS (6)
  - Abdominal distension [Recovering/Resolving]
  - Tachypnoea [Unknown]
  - Gastrointestinal disorder [Unknown]
  - Ascites [Not Recovered/Not Resolved]
  - Vomiting [Recovered/Resolved]
  - Pyrexia [Unknown]

NARRATIVE: CASE EVENT DATE: 201601
